FAERS Safety Report 24572293 (Version 1)
Quarter: 2024Q4

REPORT INFORMATION
  Report Type: Spontaneous
  Country: JP (occurrence: JP)
  Receive Date: 20241101
  Receipt Date: 20241101
  Transmission Date: 20250114
  Serious: Yes (Hospitalization, Other)
  Sender: EXELIXIS
  Company Number: JP-TAKEDA-2024TJP015440

PATIENT
  Age: 72 Year
  Sex: Male
  Weight: 62.7 kg

DRUGS (30)
  1. CABOMETYX [Suspect]
     Active Substance: CABOZANTINIB S-MALATE
     Indication: Renal cancer
     Dosage: 40 MG, QD
     Route: 048
     Dates: start: 20240612, end: 20240712
  2. CABOMETYX [Suspect]
     Active Substance: CABOZANTINIB S-MALATE
     Dosage: 40 MG, QD
     Route: 048
     Dates: start: 20240717, end: 20240719
  3. KEYTRUDA [Suspect]
     Active Substance: PEMBROLIZUMAB
     Indication: Renal cancer
     Dosage: 200 MG
     Route: 041
     Dates: start: 20230322, end: 20230322
  4. KEYTRUDA [Suspect]
     Active Substance: PEMBROLIZUMAB
     Dosage: 400 MG
     Route: 041
     Dates: start: 20230412, end: 20240501
  5. VONOPRAZAN FUMARATE [Concomitant]
     Active Substance: VONOPRAZAN FUMARATE
     Dosage: 20 MG, QD
     Route: 065
  6. RYBELSUS [Concomitant]
     Active Substance: SEMAGLUTIDE
     Dosage: 7 MG, QD
     Route: 065
  7. TRESIBA [Concomitant]
     Active Substance: INSULIN DEGLUDEC
     Dosage: UNK UNK, QD
     Route: 050
  8. NIFEDIPINE [Concomitant]
     Active Substance: NIFEDIPINE
     Dosage: 20 MG, QD
     Route: 065
  9. Oxycodone nx [Concomitant]
     Dosage: 280 MG
     Route: 065
  10. Oxycodone nx [Concomitant]
     Dosage: 20 MG, BID
     Route: 065
  11. TAPENTADOL HYDROCHLORIDE [Concomitant]
     Active Substance: TAPENTADOL HYDROCHLORIDE
     Dosage: 100 MG, TID
     Route: 065
  12. Oxinorm [Concomitant]
     Indication: Pain
     Dosage: UNK
     Route: 065
  13. MOSAPRIDE CITRATE [Concomitant]
     Active Substance: MOSAPRIDE CITRATE
     Dosage: 2.5 MG, TID
     Route: 065
  14. LEVOTHYROXINE SODIUM [Concomitant]
     Active Substance: LEVOTHYROXINE SODIUM
     Dosage: 100 UG, QD
     Route: 065
  15. LEVOTHYROXINE SODIUM [Concomitant]
     Active Substance: LEVOTHYROXINE SODIUM
     Dosage: 75 UG, QD
     Route: 065
  16. CORTRIL [Concomitant]
     Active Substance: HYDROCORTISONE
     Dosage: 12.5 MG, BID
     Route: 065
  17. CORTRIL [Concomitant]
     Active Substance: HYDROCORTISONE
     Dosage: UNK
     Route: 065
  18. DUTASTERIDE [Concomitant]
     Active Substance: DUTASTERIDE
     Dosage: 0.5 MG, QD
     Route: 065
  19. CALCIUM CARBONATE\CHOLECALCIFEROL\MAGNESIUM CARBONATE [Concomitant]
     Active Substance: CALCIUM CARBONATE\CHOLECALCIFEROL\MAGNESIUM CARBONATE
     Dosage: 1 DOSAGE FORM, QD
     Route: 065
  20. SILODOSIN [Concomitant]
     Active Substance: SILODOSIN
     Dosage: 4 MG, BID
     Route: 065
  21. CANDESARTAN CILEXETIL [Concomitant]
     Active Substance: CANDESARTAN CILEXETIL
     Dosage: 2 MG, QD
     Route: 065
  22. CRESTOR [Concomitant]
     Active Substance: ROSUVASTATIN CALCIUM
     Dosage: 5 MG, QD
     Route: 065
  23. CARBOCYSTEINE [Concomitant]
     Active Substance: CARBOCYSTEINE
     Dosage: 500 MG, TID
     Route: 065
  24. PREGABALIN [Concomitant]
     Active Substance: PREGABALIN
     Dosage: 75 MG, BID
     Route: 065
  25. CALONAL [Concomitant]
     Active Substance: ACETAMINOPHEN
     Dosage: 625 MG, QID
     Route: 065
  26. ASPIRIN [Concomitant]
     Active Substance: ASPIRIN
     Dosage: 100 MG, QD
     Route: 065
  27. DIETARY SUPPLEMENT\PROBIOTICS [Concomitant]
     Active Substance: DIETARY SUPPLEMENT\PROBIOTICS NOS
     Dosage: 1 DOSAGE FORM, TID
     Route: 065
  28. TULOBUTEROL [Concomitant]
     Active Substance: TULOBUTEROL
     Dosage: 2 MG, QD
     Route: 062
  29. UMECLIDINIUM BROMIDE [Concomitant]
     Active Substance: UMECLIDINIUM BROMIDE
     Dosage: 62.5 UG, QD
     Route: 050
  30. SYMPROIC [Concomitant]
     Active Substance: NALDEMEDINE
     Dosage: 0.2 MG, QD
     Route: 065

REACTIONS (2)
  - Immune-mediated enterocolitis [Recovering/Resolving]
  - Diarrhoea [Recovering/Resolving]

NARRATIVE: CASE EVENT DATE: 20240612
